FAERS Safety Report 8636888 (Version 4)
Quarter: 2012Q4

REPORT INFORMATION
  Report Type: Report from Study
  Country: CH (occurrence: CH)
  Receive Date: 20120626
  Receipt Date: 20121012
  Transmission Date: 20130627
  Serious: Yes (Hospitalization, Other)
  Sender: FDA-Public Use
  Company Number: CH-ABBOTT-12P-151-0947169-00

PATIENT
  Age: 51 None
  Sex: Male
  Weight: 69 kg

DRUGS (3)
  1. HUMIRA 40 MG/ 0.8 ML PRE-FILLED SYRINGE [Suspect]
     Indication: PSORIASIS
     Route: 058
     Dates: start: 20120116, end: 20120601
  2. AMLODIPIN [Concomitant]
     Indication: HYPERTENSION
     Route: 048
  3. STEROIDS [Concomitant]
     Indication: PSORIASIS
     Route: 061

REACTIONS (3)
  - Lymphadenopathy [Unknown]
  - Hodgkin^s disease [Unknown]
  - Lymph node pain [Unknown]
